FAERS Safety Report 9484318 (Version 1)
Quarter: 2013Q3

REPORT INFORMATION
  Report Type: Spontaneous
  Country: CA (occurrence: CA)
  Receive Date: 20130828
  Receipt Date: 20130828
  Transmission Date: 20140515
  Serious: Yes (Other)
  Sender: FDA-Public Use
  Company Number: CA-AMGEN-KDL402378

PATIENT
  Age: 63 Year
  Sex: Female
  Weight: 55.8 kg

DRUGS (5)
  1. ENBREL [Suspect]
     Indication: RHEUMATOID ARTHRITIS
     Dosage: UNK UNK, QWK
     Route: 065
     Dates: start: 20100326
  2. METHOTREXATE [Concomitant]
     Dosage: UNK UNK, UNK
     Route: 058
  3. IBUPROFEN [Concomitant]
     Dosage: 1800 MG, QD
     Route: 048
  4. RANITIDINE [Concomitant]
  5. MORPHINE [Concomitant]

REACTIONS (6)
  - Lip swelling [Unknown]
  - Hypoaesthesia oral [Unknown]
  - Hot flush [Unknown]
  - Gait disturbance [Unknown]
  - Headache [Unknown]
  - Arthralgia [Unknown]
